FAERS Safety Report 16764401 (Version 1)
Quarter: 2019Q3

REPORT INFORMATION
  Report Type: Report from Study
  Country: CR (occurrence: CR)
  Receive Date: 20190902
  Receipt Date: 20190902
  Transmission Date: 20191005
  Serious: Yes (Life-Threatening, Other)
  Sender: FDA-Public Use
  Company Number: PHHY2019CR203521

PATIENT
  Age: 80 Year
  Sex: Female

DRUGS (1)
  1. VYMADA [Suspect]
     Active Substance: SACUBITRIL\VALSARTAN
     Indication: PRODUCT USED FOR UNKNOWN INDICATION
     Dosage: 75 MG (25 MG IN THE MORNING AND 50 MG IN THE NIGHT), BID
     Route: 065

REACTIONS (4)
  - Ejection fraction decreased [Unknown]
  - Prescribed underdose [Unknown]
  - Diabetes mellitus [Unknown]
  - Wrong technique in product usage process [Unknown]
